FAERS Safety Report 13769283 (Version 1)
Quarter: 2017Q3

REPORT INFORMATION
  Report Type: Spontaneous
  Country: US (occurrence: US)
  Receive Date: 20170719
  Receipt Date: 20170719
  Transmission Date: 20171127
  Serious: No
  Sender: FDA-Public Use
  Company Number: US-ASTRAZENECA-2017SE73467

PATIENT
  Age: 73 Year
  Sex: Female

DRUGS (3)
  1. FASLODEX [Suspect]
     Active Substance: FULVESTRANT
     Route: 030
  2. IBRANCE [Suspect]
     Active Substance: PALBOCICLIB
     Indication: BREAST CANCER FEMALE
     Route: 048
     Dates: start: 20160218
  3. FEMARA [Suspect]
     Active Substance: LETROZOLE
     Route: 065

REACTIONS (4)
  - Neutropenia [Unknown]
  - Arthralgia [Unknown]
  - Skin disorder [Unknown]
  - Hot flush [Unknown]
